FAERS Safety Report 7147899-6 (Version None)
Quarter: 2010Q4

REPORT INFORMATION
  Report Type: 
  Country: None (occurrence: None)
  Receive Date: 20101206
  Receipt Date: 20101206
  Transmission Date: 20110411
  Serious: Yes (Hospitalization)
  Sender: FDA-Public Use
  Company Number: None

PATIENT
  Age: 80 Year
  Sex: Male
  Weight: 107 kg

DRUGS (2)
  1. CEFTRIAXONE [Suspect]
     Indication: PNEUMONIA
     Dosage: 1 GM EVERY DAY IV
     Route: 042
     Dates: start: 20100827, end: 20100901
  2. AZITHROMYCIN [Suspect]
     Indication: PNEUMONIA
     Dosage: 2 TAB ONCE PO
     Route: 048
     Dates: start: 20100827, end: 20100827

REACTIONS (2)
  - DIARRHOEA [None]
  - RENAL FAILURE ACUTE [None]
